FAERS Safety Report 6103629-8 (Version None)
Quarter: 2009Q1

REPORT INFORMATION
  Report Type: 
  Country: None (occurrence: None)
  Receive Date: 20090305
  Receipt Date: 20090225
  Transmission Date: 20090719
  Serious: Yes (Other)
  Sender: FDA-Public Use
  Company Number: US-ASTRAZENECA-2009UW05295

PATIENT
  Sex: Male
  Weight: 83.9 kg

DRUGS (8)
  1. TOPROL-XL [Suspect]
     Route: 048
  2. NORVASC [Concomitant]
  3. NOVOLOG [Concomitant]
  4. XANAX [Concomitant]
  5. HYDROCODONE [Concomitant]
  6. LEVEMIR [Concomitant]
  7. ALEVE [Concomitant]
  8. PRAVASTATIN [Concomitant]

REACTIONS (1)
  - STENT PLACEMENT [None]
